FAERS Safety Report 19202795 (Version 1)
Quarter: 2021Q2

REPORT INFORMATION
  Report Type: Spontaneous
  Country: US (occurrence: US)
  Receive Date: 20210430
  Receipt Date: 20210430
  Transmission Date: 20210717
  Serious: Yes (Other)
  Sender: FDA-Public Use
  Company Number: US-GRIFOLS-BIG0014226

PATIENT
  Age: 55 Year
  Sex: Female

DRUGS (39)
  1. GAMUNEX?C [Suspect]
     Active Substance: HUMAN IMMUNOGLOBULIN G
     Dosage: UNK
     Route: 042
  2. AUGMENTIN [Concomitant]
     Active Substance: AMOXICILLIN\CLAVULANATE POTASSIUM
  3. FLUOCINONIDE. [Concomitant]
     Active Substance: FLUOCINONIDE
  4. GABAPENTIN. [Concomitant]
     Active Substance: GABAPENTIN
  5. VENLAFAXINE HCL [Concomitant]
     Active Substance: VENLAFAXINE HYDROCHLORIDE
  6. GAMUNEX?C [Suspect]
     Active Substance: HUMAN IMMUNOGLOBULIN G
     Indication: IMMUNODEFICIENCY COMMON VARIABLE
     Dosage: 317 MILLILITER, TOTAL
     Route: 042
     Dates: start: 20210409, end: 20210409
  7. GAMUNEX?C [Suspect]
     Active Substance: HUMAN IMMUNOGLOBULIN G
     Dosage: UNK
     Route: 042
  8. EPIPEN [Concomitant]
     Active Substance: EPINEPHRINE
  9. OCTAGAM IMMUNE GLOBULIN (HUMAN) [Concomitant]
     Active Substance: HUMAN IMMUNOGLOBULIN G
  10. CEFDINIR. [Concomitant]
     Active Substance: CEFDINIR
  11. ECOTRIN [Concomitant]
     Active Substance: ASPIRIN
  12. LIDOCAINE. [Concomitant]
     Active Substance: LIDOCAINE
  13. LORAZEPAM. [Concomitant]
     Active Substance: LORAZEPAM
  14. ONDANSETRON [Concomitant]
     Active Substance: ONDANSETRON
  15. TRAMADOL HCL [Concomitant]
     Active Substance: TRAMADOL HYDROCHLORIDE
  16. DOXYCYCLINE MONOHYDRATE [Concomitant]
     Active Substance: DOXYCYCLINE
  17. SENOKOT [Concomitant]
     Active Substance: SENNOSIDES
  18. BUDESONIDE. [Concomitant]
     Active Substance: BUDESONIDE
  19. BENZONATATE. [Concomitant]
     Active Substance: BENZONATATE
  20. LYRICA [Concomitant]
     Active Substance: PREGABALIN
  21. MELOXICAM. [Concomitant]
     Active Substance: MELOXICAM
  22. ANTIBIOTICS [Concomitant]
     Active Substance: UNSPECIFIED INGREDIENT
  23. DIPHENHYDRAMINE HCL [Concomitant]
     Active Substance: DIPHENHYDRAMINE HYDROCHLORIDE
  24. HEPARIN LOCK FLUSH [Concomitant]
     Active Substance: HEPARIN SODIUM
  25. LASIX [Concomitant]
     Active Substance: FUROSEMIDE
  26. MULTIPLE VITAMINS [Concomitant]
     Active Substance: VITAMINS
  27. SYNTHROID [Concomitant]
     Active Substance: LEVOTHYROXINE SODIUM
  28. IMMUNOGLOBULINS NOS [Concomitant]
     Active Substance: IMMUNE GLOBULIN NOS
  29. ACETAMINOPHEN. [Concomitant]
     Active Substance: ACETAMINOPHEN
  30. ACIPHEX [Concomitant]
     Active Substance: RABEPRAZOLE SODIUM
  31. AMLODIPINE BESYLATE. [Concomitant]
     Active Substance: AMLODIPINE BESYLATE
  32. CEFTRIAXONE. [Concomitant]
     Active Substance: CEFTRIAXONE
  33. FLONASE [Concomitant]
     Active Substance: FLUTICASONE PROPIONATE
  34. BANOPHEN [Concomitant]
     Active Substance: DIPHENHYDRAMINE HYDROCHLORIDE
  35. CIPRO [Concomitant]
     Active Substance: CIPROFLOXACIN HYDROCHLORIDE
  36. DICLOFENAC SODIUM. [Concomitant]
     Active Substance: DICLOFENAC SODIUM
  37. LEVOTHYROXINE SODIUM. [Concomitant]
     Active Substance: LEVOTHYROXINE SODIUM
  38. NAPROXEN. [Concomitant]
     Active Substance: NAPROXEN
  39. NORMAL SALINE [Concomitant]
     Active Substance: SODIUM CHLORIDE

REACTIONS (3)
  - Urticaria [Unknown]
  - Rash [Unknown]
  - Pruritus [Unknown]

NARRATIVE: CASE EVENT DATE: 20210409
